FAERS Safety Report 14868485 (Version 2)
Quarter: 2018Q2

REPORT INFORMATION
  Report Type: Report from Study
  Country: HK (occurrence: HK)
  Receive Date: 20180509
  Receipt Date: 20180518
  Transmission Date: 20180711
  Serious: Yes (Hospitalization)
  Sender: FDA-Public Use
  Company Number: HK-ROCHE-2119330

PATIENT
  Age: 49 Year
  Sex: Male
  Weight: 49.2 kg

DRUGS (4)
  1. CAPECITABINE. [Suspect]
     Active Substance: CAPECITABINE
     Indication: NASOPHARYNGEAL CANCER
     Dosage: FREQUENCY WAS D1 -14, 3 CYCLES GIVEN
     Route: 048
     Dates: start: 20081201
  2. CISPLATIN. [Suspect]
     Active Substance: CISPLATIN
     Indication: NASOPHARYNGEAL CANCER
     Dosage: 6 CYCLES
     Route: 042
     Dates: start: 20081201
  3. 5-FU [Suspect]
     Active Substance: FLUOROURACIL
     Indication: NASOPHARYNGEAL CANCER
     Route: 042
  4. CAPECITABINE. [Suspect]
     Active Substance: CAPECITABINE
     Dosage: LAST DOSE PRIOR TO SAE ON 26/JAN/2009
     Route: 048
     Dates: start: 20090125

REACTIONS (2)
  - Renal impairment [Not Recovered/Not Resolved]
  - Mucosal inflammation [Not Recovered/Not Resolved]

NARRATIVE: CASE EVENT DATE: 20090302
